FAERS Safety Report 8760972 (Version 1)
Quarter: 2012Q4

REPORT INFORMATION
  Report Type: 
  Country: US (occurrence: US)
  Receive Date: 20120829
  Receipt Date: 20120829
  Transmission Date: 20130627
  Serious: Yes (Hospitalization)
  Sender: FDA-Public Use
  Company Number: US-ELI_LILLY_AND_COMPANY-US201208006828

PATIENT
  Age: 32 Year
  Sex: Male

DRUGS (2)
  1. ZYPREXA RELPREVV [Suspect]
     Dosage: 210 mg, unknown
     Dates: start: 201208
  2. ATIVAN [Concomitant]
     Dosage: UNK, unknown

REACTIONS (3)
  - Psychotic disorder [Unknown]
  - Anger [Unknown]
  - Agitation [Unknown]
